FAERS Safety Report 5871318-0 (Version None)
Quarter: 2008Q3

REPORT INFORMATION
  Report Type: 
  Country: None (occurrence: None)
  Receive Date: 20080905
  Receipt Date: 20080902
  Transmission Date: 20090109
  Serious: Yes (Hospitalization, Other)
  Sender: FDA-Public Use
  Company Number: US-BRISTOL-MYERS SQUIBB COMPANY-14323562

PATIENT
  Age: 81 Year
  Sex: Female
  Weight: 63 kg

DRUGS (6)
  1. COUMADIN [Suspect]
     Route: 048
     Dates: start: 20080601
  2. SYNTHROID [Suspect]
     Indication: HYPOTHYROIDISM
     Dosage: FROM FIRST WEK OF JUN-2008. 1 EVERY 2 DAYS,ALTERNATING DOSES
     Route: 048
  3. CLONAZEPAM [Concomitant]
     Dosage: SINCE 15 YEARS
     Route: 048
  4. FLUOXETINE [Concomitant]
     Dosage: SINCE 18 YEARS  AND ONGOING
     Route: 048
  5. PRAVASTATIN SODIUM [Concomitant]
     Indication: BLOOD CHOLESTEROL
     Dosage: SINCE 2 YEARS AND  ONGOING
     Route: 048
  6. CARVEDILOL [Concomitant]
     Route: 048
     Dates: start: 20080601

REACTIONS (8)
  - ASTHENIA [None]
  - BLOOD URINE PRESENT [None]
  - CARDIAC FAILURE CONGESTIVE [None]
  - CYSTITIS [None]
  - IRRITABILITY [None]
  - OVERDOSE [None]
  - SOMNOLENCE [None]
  - VOMITING [None]
